FAERS Safety Report 6232848-5 (Version None)
Quarter: 2009Q2

REPORT INFORMATION
  Report Type: 
  Country: None (occurrence: None)
  Receive Date: 20090617
  Receipt Date: 20080924
  Transmission Date: 20091009
  Serious: No
  Sender: FDA-Public Use
  Company Number: US-ASTRAZENECA-2008UW20094

PATIENT
  Age: 81 Year
  Sex: Male
  Weight: 77.1 kg

DRUGS (1)
  1. FASLODEX [Suspect]
     Indication: BREAST CANCER MALE
     Route: 030

REACTIONS (1)
  - PROTHROMBIN TIME PROLONGED [None]
